FAERS Safety Report 14954040 (Version 1)
Quarter: 2018Q2

REPORT INFORMATION
  Report Type: Report from Study
  Country: US (occurrence: US)
  Receive Date: 20180530
  Receipt Date: 20180530
  Transmission Date: 20180711
  Serious: Yes (Other)
  Sender: FDA-Public Use
  Company Number: US-ASTRAZENECA-2018SE42761

PATIENT
  Sex: Female
  Weight: 61.4 kg

DRUGS (4)
  1. LYNPARZA [Suspect]
     Active Substance: OLAPARIB
     Indication: METASTASES TO PERITONEUM
     Route: 048
     Dates: start: 20171126, end: 20180108
  2. LYNPARZA [Suspect]
     Active Substance: OLAPARIB
     Indication: METASTASES TO PERITONEUM
     Route: 048
     Dates: start: 20180116, end: 20180327
  3. LYNPARZA [Suspect]
     Active Substance: OLAPARIB
     Indication: METASTASES TO PERITONEUM
     Route: 048
     Dates: start: 20180327
  4. LISINOPRIL. [Concomitant]
     Active Substance: LISINOPRIL
     Indication: HYPERTENSION
     Dosage: 5MG

REACTIONS (1)
  - Haematotoxicity [Not Recovered/Not Resolved]
